FAERS Safety Report 15644447 (Version 1)
Quarter: 2018Q4

REPORT INFORMATION
  Report Type: Spontaneous
  Country: US (occurrence: US)
  Receive Date: 20181121
  Receipt Date: 20181121
  Transmission Date: 20190205
  Serious: Yes (Hospitalization)
  Sender: FDA-Public Use
  Company Number: None

PATIENT
  Age: 52 Year
  Sex: Male

DRUGS (22)
  1. XARELTO [Concomitant]
     Active Substance: RIVAROXABAN
  2. METHOTREXATE. [Concomitant]
     Active Substance: METHOTREXATE
  3. TRAZODONE [Concomitant]
     Active Substance: TRAZODONE HYDROCHLORIDE
  4. FLUOROMETHOL [Concomitant]
     Active Substance: FLUOROMETHOLONE
  5. INVOKANA [Concomitant]
     Active Substance: CANAGLIFLOZIN
  6. RESTASIS [Concomitant]
     Active Substance: CYCLOSPORINE
  7. LIDOPRO [Concomitant]
     Active Substance: CAPSAICIN\LIDOCAINE\MENTHOL\METHYL SALICYLATE
  8. LINZESS [Concomitant]
     Active Substance: LINACLOTIDE
  9. ATORVASTATIN [Concomitant]
     Active Substance: ATORVASTATIN
  10. FENOFIBRATE. [Concomitant]
     Active Substance: FENOFIBRATE
  11. NITROGLYCERIN. [Concomitant]
     Active Substance: NITROGLYCERIN
  12. JENTADUETO [Concomitant]
     Active Substance: LINAGLIPTIN\METFORMIN HYDROCHLORIDE
  13. SYMBOCORT [Concomitant]
  14. DULOXETINE. [Concomitant]
     Active Substance: DULOXETINE
  15. PROAIR HFA [Concomitant]
     Active Substance: ALBUTEROL SULFATE
  16. LEVOFLOXACIN. [Concomitant]
     Active Substance: LEVOFLOXACIN
  17. PREDNISONE. [Concomitant]
     Active Substance: PREDNISONE
  18. LEVEMIR [Concomitant]
     Active Substance: INSULIN DETEMIR
  19. COSENTYX [Suspect]
     Active Substance: SECUKINUMAB
     Indication: PSORIATIC ARTHROPATHY
     Dosage: ?          OTHER FREQUENCY:QOW;?
     Route: 058
     Dates: start: 20160606
  20. HYDROCO/APAP [Concomitant]
     Active Substance: ACETAMINOPHEN\HYDROCODONE
  21. BENADRYL [Concomitant]
     Active Substance: DIPHENHYDRAMINE HYDROCHLORIDE
  22. NIFEDIPINE. [Concomitant]
     Active Substance: NIFEDIPINE

REACTIONS (1)
  - Pneumonia [None]

NARRATIVE: CASE EVENT DATE: 20181101
